FAERS Safety Report 15881296 (Version 6)
Quarter: 2019Q3

REPORT INFORMATION
  Report Type: Report from Study
  Country: US (occurrence: US)
  Receive Date: 20190128
  Receipt Date: 20190924
  Transmission Date: 20191004
  Serious: Yes (Other)
  Sender: FDA-Public Use
  Company Number: US-ACTELION-A-NJ2016-136218

PATIENT
  Age: 51 Year
  Sex: Female
  Weight: 97.51 kg

DRUGS (7)
  1. VELETRI [Suspect]
     Active Substance: EPOPROSTENOL
     Dosage: UNK
     Route: 042
  2. LASIX [Suspect]
     Active Substance: FUROSEMIDE
     Indication: PRODUCT USED FOR UNKNOWN INDICATION
     Dosage: 20 MG, QD
     Route: 065
  3. ADCIRCA [Concomitant]
     Active Substance: TADALAFIL
  4. COUMADIN [Concomitant]
     Active Substance: WARFARIN SODIUM
  5. VELETRI [Suspect]
     Active Substance: EPOPROSTENOL
     Dosage: UNK
     Route: 042
  6. VELETRI [Suspect]
     Active Substance: EPOPROSTENOL
     Indication: PULMONARY ARTERIAL HYPERTENSION
     Dosage: 26 NG/KG, PER MIN
     Route: 042
  7. VELETRI [Suspect]
     Active Substance: EPOPROSTENOL
     Dosage: 31 NG/KG, PER MIN
     Route: 042
     Dates: start: 20150615

REACTIONS (35)
  - Fatigue [Unknown]
  - Hypometabolism [Not Recovered/Not Resolved]
  - Upper respiratory tract infection [Not Recovered/Not Resolved]
  - Pain [Not Recovered/Not Resolved]
  - Chest pain [Unknown]
  - Dysphonia [Unknown]
  - Dizziness [Unknown]
  - Arthralgia [Not Recovered/Not Resolved]
  - Feeling abnormal [Unknown]
  - Gastroenteritis viral [Unknown]
  - Insomnia [Unknown]
  - Pain in extremity [Unknown]
  - Catheter site irritation [Recovering/Resolving]
  - Rash [Unknown]
  - Headache [Unknown]
  - Catheter site related reaction [Unknown]
  - Pericardial effusion [Unknown]
  - Oropharyngeal pain [Unknown]
  - Pain in jaw [Not Recovered/Not Resolved]
  - Laryngitis [Unknown]
  - Flushing [Not Recovered/Not Resolved]
  - Catheter site nodule [Unknown]
  - Weight decreased [Unknown]
  - Loss of consciousness [Unknown]
  - Bronchitis [Unknown]
  - Nasopharyngitis [Unknown]
  - Neuralgia [Not Recovered/Not Resolved]
  - Nausea [Unknown]
  - Neuropathy peripheral [Unknown]
  - Dyspnoea [Unknown]
  - Multiple allergies [Unknown]
  - Diarrhoea [Not Recovered/Not Resolved]
  - Device connection issue [Unknown]
  - Dyspnoea exertional [Unknown]
  - Palpitations [Not Recovered/Not Resolved]

NARRATIVE: CASE EVENT DATE: 20180406
